FAERS Safety Report 7373365 (Version 3)
Quarter: 2013Q4

REPORT INFORMATION
  Report Type: Spontaneous
  Country: US (occurrence: US)
  Receive Date: 20100503
  Receipt Date: 20131015
  Transmission Date: 20140711
  Serious: Yes (Other)
  Sender: FDA-Public Use
  Company Number: US-ASTRAZENECA-2010SE02351

PATIENT
  Age: 86 Year
  Sex: Male
  Weight: 70.3 kg

DRUGS (17)
  1. NEXIUM [Suspect]
     Indication: GASTROOESOPHAGEAL REFLUX DISEASE
     Route: 048
     Dates: start: 2001
  2. NEXIUM [Suspect]
     Indication: GASTROOESOPHAGEAL REFLUX DISEASE
     Route: 048
     Dates: start: 2004
  3. NEXIUM [Suspect]
     Indication: GASTROOESOPHAGEAL REFLUX DISEASE
     Route: 048
     Dates: start: 2007
  4. NEXIUM [Suspect]
     Indication: GASTROOESOPHAGEAL REFLUX DISEASE
     Route: 048
     Dates: start: 2008
  5. ASPIRIN [Concomitant]
     Dosage: 1/2 TABLET DAILY
     Route: 048
  6. DETROL [Concomitant]
     Indication: BLADDER DISORDER
     Route: 048
     Dates: start: 2003
  7. DETROL [Concomitant]
     Indication: BLADDER DISORDER
     Dosage: BID
  8. HYDROCHLORTHIAZIDE [Concomitant]
     Indication: BLOOD PRESSURE ABNORMAL
     Route: 048
  9. HYDROCHLORTHIAZIDE [Concomitant]
     Indication: BLOOD PRESSURE ABNORMAL
     Route: 048
  10. POTASSIUM [Concomitant]
     Dosage: 1 TSP DAILY
     Route: 048
     Dates: start: 2003
  11. LEVOTHYROXINE [Concomitant]
     Indication: THYROID DISORDER
     Route: 048
     Dates: start: 2003
  12. FLOMAX [Concomitant]
     Route: 055
  13. FAMOTIDINE [Concomitant]
  14. CARAFATE [Concomitant]
  15. PROSCAR [Concomitant]
     Indication: PROSTATIC DISORDER
     Route: 050
     Dates: start: 2011
  16. VIT D3 [Concomitant]
     Indication: SUPPLEMENTATION THERAPY
     Dosage: 500 UNITS DAILY
     Route: 050
  17. VITAMIN B12 [Concomitant]
     Indication: SUPPLEMENTATION THERAPY
     Route: 050

REACTIONS (10)
  - Cerebrovascular accident [Unknown]
  - Bone loss [Unknown]
  - Type 2 diabetes mellitus [Unknown]
  - Hypertension [Unknown]
  - Dysphonia [Unknown]
  - Rhinorrhoea [Unknown]
  - Cough [Unknown]
  - Oropharyngeal pain [Unknown]
  - Dysgeusia [Unknown]
  - Off label use [Unknown]
